FAERS Safety Report 8956131 (Version 1)
Quarter: 2012Q4

REPORT INFORMATION
  Report Type: 
  Country: TW (occurrence: TW)
  Receive Date: 20121210
  Receipt Date: 20121210
  Transmission Date: 20130627
  Serious: Yes (Other)
  Sender: FDA-Public Use
  Company Number: PHHY2012TW113302

PATIENT
  Age: 56 Year
  Sex: Female

DRUGS (9)
  1. RIFAMPICIN [Suspect]
     Indication: TUBERCULOSIS
     Dosage: 450 mg, per day
  2. ZOTEPINE [Interacting]
     Indication: SCHIZOPHRENIA
     Dosage: 50 mg, TID
  3. ZOTEPINE [Interacting]
     Dosage: 300 mg, per day
  4. ZOTEPINE [Interacting]
     Dosage: 150 mg, per day
  5. ISONIAZID [Concomitant]
     Indication: TUBERCULOSIS
     Dosage: 300 mg, per day
  6. PYRAZINAMIDE [Concomitant]
     Indication: TUBERCULOSIS
     Dosage: 200 mg, per day
  7. ESTAZOLAM [Concomitant]
     Indication: SCHIZOPHRENIA
  8. AMLODIPINE [Concomitant]
     Indication: HYPERTENSION
     Dosage: 1 DF, QD
  9. PROPRANOLOL [Concomitant]
     Indication: HYPERTENSION
     Dosage: 10 mg, TID

REACTIONS (7)
  - Psychotic disorder [Recovered/Resolved]
  - Violence-related symptom [Recovered/Resolved]
  - Persecutory delusion [Recovered/Resolved]
  - Delusion of reference [Recovered/Resolved]
  - Delusion of grandeur [Recovered/Resolved]
  - Hallucination, auditory [Recovered/Resolved]
  - Drug interaction [Unknown]
